FAERS Safety Report 4503864-6 (Version None)
Quarter: 2004Q4

REPORT INFORMATION
  Report Type: 
  Country: None (occurrence: None)
  Receive Date: 20041115
  Receipt Date: 20041108
  Transmission Date: 20050328
  Serious: Yes (Life-Threatening, Hospitalization)
  Sender: FDA-Public Use
  Company Number: 2004-11-0404

PATIENT
  Age: 25 Year
  Sex: Female

DRUGS (1)
  1. TEMODAL [Suspect]
     Dosage: ORAL
     Route: 048
     Dates: start: 20041001

REACTIONS (2)
  - CEREBRAL HAEMORRHAGE [None]
  - CONVULSION [None]
